FAERS Safety Report 9620796 (Version 2)
Quarter: 2013Q4

REPORT INFORMATION
  Report Type: Report from Study
  Country: DE (occurrence: DE)
  Receive Date: 20131015
  Receipt Date: 20131105
  Transmission Date: 20140711
  Serious: Yes (Other)
  Sender: FDA-Public Use
  Company Number: DE-ROCHE-1288746

PATIENT
  Age: 92 Year
  Sex: Female

DRUGS (3)
  1. RANIBIZUMAB [Suspect]
     Indication: AGE-RELATED MACULAR DEGENERATION
     Route: 050
     Dates: start: 20121010, end: 20121205
  2. RANIBIZUMAB [Suspect]
     Route: 050
     Dates: start: 20121205
  3. ISOPTO MAX [Concomitant]
     Route: 065
     Dates: start: 20121010, end: 20121205

REACTIONS (2)
  - Detachment of retinal pigment epithelium [Not Recovered/Not Resolved]
  - Retinal disorder [Unknown]
